FAERS Safety Report 20192407 (Version 1)
Quarter: 2021Q4

REPORT INFORMATION
  Report Type: Spontaneous
  Country: JP (occurrence: JP)
  Receive Date: 20211216
  Receipt Date: 20211216
  Transmission Date: 20220303
  Serious: Yes (Hospitalization, Other)
  Sender: FDA-Public Use
  Company Number: JP-SAKK-00894295

PATIENT
  Age: 96 Year
  Sex: Female

DRUGS (2)
  1. PLAVIX [Suspect]
     Active Substance: CLOPIDOGREL BISULFATE
     Indication: Product used for unknown indication
     Dosage: REDUCED TO 50 MG (TWO 25MG TABLETS) FROM 75 MG
     Route: 048
  2. PLAVIX [Suspect]
     Active Substance: CLOPIDOGREL BISULFATE
     Dosage: 75 MG WHICH WAS LATER REDUCED TO 50 MG (TWO 25MG TABLETS)
     Route: 048

REACTIONS (3)
  - Brain oedema [Unknown]
  - Hydrocephalus [Unknown]
  - Weight decreased [Unknown]
